FAERS Safety Report 20060360 (Version 1)
Quarter: 2021Q4

REPORT INFORMATION
  Report Type: Spontaneous
  Country: NL (occurrence: NL)
  Receive Date: 20211112
  Receipt Date: 20211112
  Transmission Date: 20220303
  Serious: Yes (Other)
  Sender: FDA-Public Use
  Company Number: NL-USP-000001

PATIENT
  Age: 4 Hour
  Weight: 2.980 kg

DRUGS (1)
  1. NITROGLYCERIN [Suspect]
     Active Substance: NITROGLYCERIN
     Indication: Peripheral ischaemia
     Dosage: SPRAY,
     Route: 061

REACTIONS (2)
  - Product use in unapproved indication [Unknown]
  - Necrosis [Recovered/Resolved]
